FAERS Safety Report 21333203 (Version 1)
Quarter: 2022Q3

REPORT INFORMATION
  Report Type: Report from Study
  Country: US (occurrence: None)
  Receive Date: 20220914
  Receipt Date: 20220914
  Transmission Date: 20221027
  Serious: Yes (Death, Life-Threatening, Hospitalization, Disabling, Other)
  Sender: FDA-Public Use
  Company Number: US-ROCHE-2353562

PATIENT
  Age: 59 Year
  Sex: Female
  Weight: 64.8 kg

DRUGS (9)
  1. ATEZOLIZUMAB [Suspect]
     Active Substance: ATEZOLIZUMAB
     Indication: Ovarian cancer
     Dosage: LAST DOSE ADMINISTERED ON 24/MAY/2019 PRIOR TO EVENT ONSET- 1600 MG, 09/MAY/2019
     Route: 041
     Dates: start: 20181231
  2. BEVACIZUMAB [Suspect]
     Active Substance: BEVACIZUMAB
     Indication: Ovarian cancer
     Dosage: LAST DOSE ADMINISTERED ON 24/MAY/2019 PRIOR TO EVENT ONSET- 1327 MG
     Route: 042
     Dates: start: 20181231
  3. DOXORUBICIN HYDROCHLORIDE [Suspect]
     Active Substance: DOXORUBICIN HYDROCHLORIDE
     Indication: Ovarian cancer
     Dosage: LAST DOSE ADMINISTERED ON 24/MAY/2019 PRIOR TO EVENT ONSET 50 MG
     Route: 042
     Dates: start: 20181231
  4. PREDNISONE [Concomitant]
     Active Substance: PREDNISONE
  5. AUGMENTIN [Concomitant]
     Active Substance: AMOXICILLIN\CLAVULANATE POTASSIUM
  6. MORPHINE [Concomitant]
     Active Substance: MORPHINE
  7. ZOFRAN [Concomitant]
     Active Substance: ONDANSETRON HYDROCHLORIDE
  8. SOLU-MEDROL [Concomitant]
     Active Substance: METHYLPREDNISOLONE SODIUM SUCCINATE
  9. FENTANYL [Concomitant]
     Active Substance: FENTANYL

REACTIONS (17)
  - Hepatic enzyme increased [Unknown]
  - Posterior reversible encephalopathy syndrome [Recovered/Resolved]
  - Aspiration [Recovered/Resolved]
  - Respiratory failure [Recovered/Resolved]
  - Hypertension [Recovered/Resolved]
  - Death [Fatal]
  - Headache [Recovered/Resolved]
  - Arthralgia [Recovering/Resolving]
  - Rash maculo-papular [Recovering/Resolving]
  - Fatigue [Unknown]
  - Blood bilirubin increased [Recovered/Resolved]
  - Muscular weakness [Unknown]
  - Autoimmune hepatitis [Unknown]
  - Bacteraemia [Recovered/Resolved]
  - Sinusitis [Unknown]
  - Leukocytosis [Unknown]
  - Hepatobiliary disease [Unknown]

NARRATIVE: CASE EVENT DATE: 20190219
